FAERS Safety Report 22289835 (Version 1)
Quarter: 2023Q2

REPORT INFORMATION
  Report Type: Spontaneous
  Country: US (occurrence: None)
  Receive Date: 20230504
  Receipt Date: 20230504
  Transmission Date: 20230722
  Serious: Yes (Hospitalization)
  Sender: FDA-Public Use
  Company Number: None

PATIENT
  Age: 76 Year
  Sex: Male
  Weight: 57.6 kg

DRUGS (21)
  1. TECLISTAMAB [Suspect]
     Active Substance: TECLISTAMAB
     Indication: Plasma cell myeloma
     Dosage: OTHER FREQUENCY : ONCE;?
     Route: 058
     Dates: start: 202301, end: 20230128
  2. TECLISTAMAB [Concomitant]
     Active Substance: TECLISTAMAB
     Dates: start: 20230124, end: 20230124
  3. teclistimab 17.5 mg [Concomitant]
     Dates: start: 20230126, end: 20230126
  4. acetaminophen 1000mg [Concomitant]
     Dates: start: 20230126, end: 20230126
  5. ACYCLOVIR [Concomitant]
     Active Substance: ACYCLOVIR
     Dates: start: 20230124, end: 20230207
  6. ALLOPURINOL [Concomitant]
     Active Substance: ALLOPURINOL
     Dates: start: 20230124, end: 20230207
  7. APIXABAN [Concomitant]
     Active Substance: APIXABAN
     Dates: start: 20230124, end: 20230207
  8. dexamethasone 16 mg [Concomitant]
     Dates: start: 20230126, end: 20230126
  9. dexamethasone 10 mg [Concomitant]
     Dates: start: 20230128, end: 20230128
  10. dexamethasone 10 mg [Concomitant]
     Dates: start: 202301, end: 20230130
  11. diphenhydramine 50 mg [Concomitant]
     Dates: start: 20230126, end: 20230126
  12. FAMOTIDINE [Concomitant]
     Active Substance: FAMOTIDINE
     Dates: start: 202301, end: 20230207
  13. FINASTERIDE [Concomitant]
     Active Substance: FINASTERIDE
     Dates: start: 20230124, end: 20230207
  14. Lactated ringers 500 ml [Concomitant]
     Dates: start: 20230128, end: 20230128
  15. Metoprolol 12.5 mg QHS [Concomitant]
     Dates: start: 20230124, end: 20230207
  16. MONTELUKAST SODIUM [Concomitant]
     Active Substance: MONTELUKAST SODIUM
     Dates: start: 20230124, end: 20230207
  17. ZOSYN [Concomitant]
     Active Substance: PIPERACILLIN SODIUM\TAZOBACTAM SODIUM
     Dates: start: 20230128, end: 20230131
  18. sodium chloride 500ml [Concomitant]
     Dates: start: 20230126, end: 20230126
  19. NS continuous at 75 ml/hr [Concomitant]
     Dates: start: 20230127, end: 20230201
  20. phenylephrine gtts [Concomitant]
     Dates: start: 20230128, end: 20230129
  21. IOHEXOL [Concomitant]
     Active Substance: IOHEXOL
     Dates: start: 20230127, end: 20230127

REACTIONS (2)
  - Cytokine release syndrome [None]
  - Abdominal pain [None]

NARRATIVE: CASE EVENT DATE: 20230128
